FAERS Safety Report 4470492-0 (Version None)
Quarter: 2004Q4

REPORT INFORMATION
  Report Type: 
  Country: None (occurrence: None)
  Receive Date: 20041001
  Receipt Date: 20040917
  Transmission Date: 20050328
  Serious: Yes (Death, Hospitalization)
  Sender: FDA-Public Use
  Company Number: 2004AL000198

PATIENT

DRUGS (2)
  1. KADIAN [Suspect]
     Dosage: ORAL
     Route: 048
  2. METHADON HCL TAB [Suspect]
     Dosage: PO
     Route: 048

REACTIONS (11)
  - BRONCHOPNEUMOPATHY [None]
  - COMA [None]
  - DRUG INEFFECTIVE [None]
  - INADEQUATE ANALGESIA [None]
  - MENTAL DISORDER [None]
  - ORTHOSTATIC HYPOTENSION [None]
  - PAIN [None]
  - RESPIRATORY DEPRESSION [None]
  - SOMNOLENCE [None]
  - THERAPEUTIC RESPONSE DECREASED [None]
  - VOMITING [None]
